FAERS Safety Report 8477050-1 (Version None)
Quarter: 2012Q2

REPORT INFORMATION
  Report Type: 
  Country: None (occurrence: None)
  Receive Date: 20120629
  Receipt Date: 20120627
  Transmission Date: 20120825
  Serious: Yes (Other)
  Sender: FDA-Public Use
  Company Number: US-PFIZER INC-2012155688

PATIENT
  Sex: Female
  Weight: 74.83 kg

DRUGS (3)
  1. XANAX [Suspect]
     Indication: MENTAL DISORDER
     Dosage: UNK, 3X/DAY
     Route: 048
     Dates: start: 19830101, end: 19930101
  2. XANAX [Suspect]
     Dosage: UNK
     Route: 048
     Dates: start: 19980101
  3. LIPITOR [Concomitant]
     Indication: BLOOD CHOLESTEROL INCREASED
     Dosage: 40 MG, DAILY
     Route: 048

REACTIONS (1)
  - DRUG DEPENDENCE [None]
